FAERS Safety Report 11919117 (Version 1)
Quarter: 2016Q1

REPORT INFORMATION
  Report Type: Spontaneous
  Country: US (occurrence: None)
  Receive Date: 20160114
  Receipt Date: 20160114
  Transmission Date: 20160526
  Serious: Yes (Hospitalization)
  Sender: FDA-Public Use
  Company Number: None

PATIENT
  Age: 38 Year
  Sex: Female
  Weight: 108.86 kg

DRUGS (4)
  1. HUMIRA [Suspect]
     Active Substance: ADALIMUMAB
     Indication: HIDRADENITIS
     Dosage: EVERY OTHER WEEK  GIVEN INTO/UNDER THE SKIN
     Dates: start: 20120331, end: 20140630
  2. VANCOMYCIN [Concomitant]
     Active Substance: VANCOMYCIN
  3. PENTOXIFYLLINE ER [Concomitant]
  4. BACTRIM DS [Concomitant]
     Active Substance: SULFAMETHOXAZOLE\TRIMETHOPRIM

REACTIONS (5)
  - Skin lesion [None]
  - Erythema [None]
  - Skin discolouration [None]
  - Inflammation of wound [None]
  - Wound [None]

NARRATIVE: CASE EVENT DATE: 20160113
